FAERS Safety Report 7788679-8 (Version None)
Quarter: 2011Q3

REPORT INFORMATION
  Report Type: 
  Country: None (occurrence: None)
  Receive Date: 20110928
  Receipt Date: 20110912
  Transmission Date: 20111222
  Serious: Yes (Other)
  Sender: FDA-Public Use
  Company Number: 2011P1005455

PATIENT
  Age: 78 Year
  Sex: Female
  Weight: 77.1115 kg

DRUGS (11)
  1. VERAPAMIL [Concomitant]
  2. CHLORATHALIDONE [Concomitant]
  3. XANAX [Concomitant]
  4. NYSTATIN + TRIAMCINOLONE ACETONIDE [Suspect]
     Indication: VULVOVAGINAL PRURITUS
     Dosage: 1 APPLICATORFUL;X1;VAG
     Route: 067
     Dates: start: 20110124, end: 20110101
  5. NYSTATIN + TRIAMCINOLONE ACETONIDE [Suspect]
     Indication: VULVOVAGINAL BURNING SENSATION
     Dosage: 1 APPLICATORFUL;X1;VAG
     Route: 067
     Dates: start: 20110124, end: 20110101
  6. LEVOXYL [Concomitant]
  7. KLOR-CON [Concomitant]
  8. ASPIRIN [Concomitant]
  9. TERCONAZOLE [Suspect]
     Indication: VULVOVAGINAL BURNING SENSATION
     Dosage: 1 APPLICATORFUL;X1;VAG
     Route: 067
     Dates: start: 20110124, end: 20110101
  10. TERCONAZOLE [Suspect]
     Indication: VULVOVAGINAL PRURITUS
     Dosage: 1 APPLICATORFUL;X1;VAG
     Route: 067
     Dates: start: 20110124, end: 20110101
  11. COUMADIN (WARFARIN SODIUM0 [Concomitant]

REACTIONS (10)
  - WRONG DRUG ADMINISTERED [None]
  - URINARY TRACT INFECTION [None]
  - APPLICATION SITE PAIN [None]
  - APPLICATION SITE PRURITUS [None]
  - APPLICATION SITE IRRITATION [None]
  - APPLICATION SITE BURN [None]
  - DRUG INEFFECTIVE [None]
  - PRODUCT PACKAGING ISSUE [None]
  - INCORRECT ROUTE OF DRUG ADMINISTRATION [None]
  - DRUG DISPENSING ERROR [None]
